FAERS Safety Report 5329100-9 (Version None)
Quarter: 2007Q2

REPORT INFORMATION
  Report Type: 
  Country: None (occurrence: None)
  Receive Date: 20070518
  Receipt Date: 20070514
  Transmission Date: 20071010
  Serious: Yes (Other)
  Sender: FDA-Public Use
  Company Number: GB-BOEHRINGER INGELHEIM PHARMACEUTICALS, INC.-2007-BP-06495YA

PATIENT
  Sex: Male
  Weight: 83 kg

DRUGS (6)
  1. FLOMAXTRA XL (TAMSULOSIN) ORODISPERSABLE CR TABLET 0.4MG [Suspect]
     Indication: BLADDER OBSTRUCTION
     Route: 048
     Dates: start: 20070417, end: 20070419
  2. ZOTON [Concomitant]
     Route: 048
  3. CALCICHEW [Concomitant]
     Indication: OSTEOPOROSIS
     Route: 048
  4. KOLANTICON [Concomitant]
     Indication: DYSPEPSIA
     Route: 048
  5. PARACETAMOL [Concomitant]
     Indication: PAIN
     Route: 048
  6. ACTONEL [Concomitant]
     Indication: OSTEOPOROSIS
     Route: 048

REACTIONS (4)
  - DYSPEPSIA [None]
  - HEADACHE [None]
  - TOOTHACHE [None]
  - URINARY INCONTINENCE [None]
